FAERS Safety Report 7238181-7 (Version None)
Quarter: 2011Q1

REPORT INFORMATION
  Report Type: 
  Country: None (occurrence: None)
  Receive Date: 20110121
  Receipt Date: 20110114
  Transmission Date: 20110831
  Serious: Yes (Other)
  Sender: FDA-Public Use
  Company Number: US-TEVA-263502USA

PATIENT
  Sex: Female

DRUGS (2)
  1. PROPACET 100 [Suspect]
     Dosage: 180 TABLETS PER MONTH
     Dates: start: 19950101
  2. PROPOXYPHENE NAPSYLATE AND ACETAMINOPHEN [Suspect]
     Route: 048
     Dates: end: 20110101

REACTIONS (5)
  - ATRIAL FIBRILLATION [None]
  - CEREBROVASCULAR ACCIDENT [None]
  - HEART RATE INCREASED [None]
  - FATIGUE [None]
  - DYSPNOEA [None]
